FAERS Safety Report 21396322 (Version 2)
Quarter: 2022Q4

REPORT INFORMATION
  Report Type: Spontaneous
  Country: US (occurrence: US)
  Receive Date: 20220930
  Receipt Date: 20221002
  Transmission Date: 20230113
  Serious: Yes (Hospitalization, Other)
  Sender: FDA-Public Use
  Company Number: US-UNITED THERAPEUTICS-UNT-2022-021867

PATIENT
  Sex: Male

DRUGS (4)
  1. REMODULIN [Suspect]
     Active Substance: TREPROSTINIL
     Indication: Pulmonary arterial hypertension
     Dosage: UNK, CONTINUING
     Route: 058
     Dates: start: 20220308
  2. REMODULIN [Suspect]
     Active Substance: TREPROSTINIL
     Dosage: 0.0392 ?G/KG, CONTINUING
     Route: 058
     Dates: start: 2022
  3. REMODULIN [Suspect]
     Active Substance: TREPROSTINIL
     Dosage: 0.0329 ?G/KG, CONTINUING
     Route: 058
     Dates: start: 2022
  4. LOMOTIL [Suspect]
     Active Substance: ATROPINE SULFATE\DIPHENOXYLATE HYDROCHLORIDE
     Indication: Product used for unknown indication
     Dosage: UNK
     Route: 065
     Dates: start: 2022, end: 2022

REACTIONS (9)
  - Cardiac failure congestive [Unknown]
  - Fluid retention [Unknown]
  - Diarrhoea [Unknown]
  - Pain in extremity [Unknown]
  - Nausea [Unknown]
  - Swelling [Unknown]
  - Device failure [Unknown]
  - Illness [Unknown]
  - Sleep disorder [Unknown]

NARRATIVE: CASE EVENT DATE: 20220101
